FAERS Safety Report 5329664-5 (Version None)
Quarter: 2007Q2

REPORT INFORMATION
  Report Type: 
  Country: None (occurrence: None)
  Receive Date: 20070227
  Receipt Date: 20060310
  Transmission Date: 20071010
  Serious: Yes (Hospitalization)
  Sender: FDA-Public Use
  Company Number: 440116

PATIENT
  Age: 16 Year
  Sex: Female
  Weight: 45.4 kg

DRUGS (2)
  1. ACCUTANE [Suspect]
     Indication: ACNE
     Dosage: ORAL
     Route: 048
     Dates: start: 20051115, end: 20060309
  2. ORTHO TRI-CYCLEN (ETHINYL ESTRADIOL/NORESTIMATE) [Concomitant]

REACTIONS (4)
  - HEPATIC ENZYME INCREASED [None]
  - ISCHAEMIC STROKE [None]
  - LIVER FUNCTION TEST ABNORMAL [None]
  - SINUSITIS [None]
